FAERS Safety Report 24383833 (Version 1)
Quarter: 2024Q3

REPORT INFORMATION
  Report Type: Spontaneous
  Country: US (occurrence: None)
  Receive Date: 20240930
  Receipt Date: 20240930
  Transmission Date: 20241017
  Serious: Yes (Other)
  Sender: Public
  Company Number: None

PATIENT
  Age: 62 Year
  Sex: Male
  Weight: 87.3 kg

DRUGS (1)
  1. MOUNJARO [Suspect]
     Active Substance: TIRZEPATIDE
     Dates: start: 20240925, end: 20240928

REACTIONS (4)
  - Diarrhoea [None]
  - Vomiting [None]
  - Neonatal dyspnoea [None]
  - Abdominal pain [None]

NARRATIVE: CASE EVENT DATE: 20240928
